FAERS Safety Report 8098775-6 (Version None)
Quarter: 2012Q1

REPORT INFORMATION
  Report Type: 
  Country: None (occurrence: None)
  Receive Date: 20120131
  Receipt Date: 20120125
  Transmission Date: 20120608
  Serious: No
  Sender: FDA-Public Use
  Company Number: US-BAYER-2012-008859

PATIENT
  Age: 88 Year
  Sex: Female
  Weight: 66 kg

DRUGS (4)
  1. ALEVE (CAPLET) [Suspect]
     Indication: ARTHRITIS
     Dosage: 1 TABLET ONCE DAILY - 250 COUNT
     Route: 048
     Dates: end: 20120125
  2. METOPROLOL TARTRATE [Concomitant]
  3. NIFEDIPINE [Concomitant]
  4. HYDROCHLOROTHIAZIDE [Concomitant]

REACTIONS (1)
  - ABDOMINAL DISTENSION [None]
